FAERS Safety Report 8555714-9 (Version None)
Quarter: 2012Q3

REPORT INFORMATION
  Report Type: 
  Country: None (occurrence: None)
  Receive Date: 20120801
  Receipt Date: 20120723
  Transmission Date: 20120928
  Serious: Yes (Other)
  Sender: FDA-Public Use
  Company Number: US-009507513-1207USA010571

PATIENT

DRUGS (3)
  1. ZOCOR [Suspect]
     Route: 048
  2. FUSIDIC ACID [Concomitant]
  3. RAMIPRIL [Concomitant]

REACTIONS (2)
  - MYALGIA [None]
  - PAIN IN EXTREMITY [None]
